FAERS Safety Report 14024919 (Version 1)
Quarter: 2017Q3

REPORT INFORMATION
  Report Type: Spontaneous
  Country: US (occurrence: US)
  Receive Date: 20170929
  Receipt Date: 20170929
  Transmission Date: 20171128
  Serious: No
  Sender: FDA-Public Use
  Company Number: US-ELI_LILLY_AND_COMPANY-US201709004038

PATIENT
  Sex: Male

DRUGS (1)
  1. HUMATROPE [Suspect]
     Active Substance: SOMATROPIN
     Indication: GROWTH HORMONE DEFICIENCY
     Dosage: 1.7 MG, UNKNOWN
     Route: 058
     Dates: start: 20170904

REACTIONS (1)
  - Underdose [Unknown]
